FAERS Safety Report 5681025-5 (Version None)
Quarter: 2008Q1

REPORT INFORMATION
  Report Type: 
  Country: None (occurrence: None)
  Receive Date: 20080326
  Receipt Date: 20080319
  Transmission Date: 20080703
  Serious: Yes (Hospitalization)
  Sender: FDA-Public Use
  Company Number: IT-PFIZER INC-2008025762

PATIENT
  Sex: Male

DRUGS (7)
  1. CELEBREX [Suspect]
     Indication: ARTHRALGIA
     Dosage: TEXT:2UNIT DOSE DAILY
     Route: 048
     Dates: start: 20080308, end: 20080315
  2. ALLOPURINOL [Concomitant]
  3. CARDURA [Concomitant]
  4. LASIX [Concomitant]
  5. DILATREND [Concomitant]
  6. GLIBOMET [Concomitant]
  7. TORSEMIDE [Concomitant]

REACTIONS (1)
  - PURPURA [None]
